FAERS Safety Report 7768742-8 (Version None)
Quarter: 2011Q3

REPORT INFORMATION
  Report Type: 
  Country: None (occurrence: None)
  Receive Date: 20110922
  Receipt Date: 20101005
  Transmission Date: 20111222
  Serious: No
  Sender: FDA-Public Use
  Company Number: US-ASTRAZENECA-2010SE36723

PATIENT
  Age: 19073 Day
  Sex: Male
  Weight: 163.3 kg

DRUGS (3)
  1. SEROQUEL XR [Suspect]
     Indication: BIPOLAR I DISORDER
     Route: 048
     Dates: start: 20100301
  2. SEROQUEL XR [Suspect]
     Indication: DEPRESSION
     Route: 048
     Dates: start: 20100301
  3. SEROQUEL XR [Suspect]
     Indication: HALLUCINATION
     Route: 048
     Dates: start: 20100301

REACTIONS (6)
  - OEDEMA PERIPHERAL [None]
  - BRONCHITIS [None]
  - OBSESSIVE-COMPULSIVE DISORDER [None]
  - GAIT DISTURBANCE [None]
  - DRUG DOSE OMISSION [None]
  - NASOPHARYNGITIS [None]
